FAERS Safety Report 15263763 (Version 1)
Quarter: 2018Q3

REPORT INFORMATION
  Report Type: Spontaneous
  Country: GB (occurrence: GB)
  Receive Date: 20180810
  Receipt Date: 20180810
  Transmission Date: 20181010
  Serious: Yes (Hospitalization)
  Sender: FDA-Public Use
  Company Number: GB-TEVA-2018-GB-937382

PATIENT
  Sex: Male

DRUGS (2)
  1. COCODAMOL [Suspect]
     Active Substance: ACETAMINOPHEN\CODEINE PHOSPHATE
     Dosage: 30/500MG, UNK
     Dates: start: 20171113
  2. COCODAMOL [Suspect]
     Active Substance: ACETAMINOPHEN\CODEINE PHOSPHATE
     Indication: LUMBAR SPINAL STENOSIS
     Dosage: 30/500MG
     Dates: start: 201605

REACTIONS (8)
  - Hyperhidrosis [Unknown]
  - Chills [Unknown]
  - Eructation [Unknown]
  - Feeling cold [Unknown]
  - Vomiting [Unknown]
  - Dehydration [Unknown]
  - Abdominal pain upper [Unknown]
  - Dizziness [Unknown]

NARRATIVE: CASE EVENT DATE: 20171121
